FAERS Safety Report 12972389 (Version 1)
Quarter: 2016Q4

REPORT INFORMATION
  Report Type: Report from Study
  Country: KR (occurrence: KR)
  Receive Date: 20161124
  Receipt Date: 20161124
  Transmission Date: 20170207
  Serious: No
  Sender: FDA-Public Use
  Company Number: KR-PROSTRAKAN-2016-KR-0163

PATIENT

DRUGS (16)
  1. WELLTAMIN [Concomitant]
     Indication: HEPATIC CIRRHOSIS
     Dosage: UNKNOWN
     Route: 065
     Dates: start: 20110531
  2. LASIX [Concomitant]
     Active Substance: FUROSEMIDE
     Indication: HEPATIC CIRRHOSIS
     Dosage: UNKNOWN
     Route: 065
     Dates: start: 20110601
  3. BONKY [Concomitant]
     Indication: HEPATIC CIRRHOSIS
     Dosage: UNKNOWN
     Route: 065
     Dates: start: 20110531
  4. PANCRON [Concomitant]
     Indication: HEPATIC CIRRHOSIS
     Dosage: UNKNOWN
     Route: 065
     Dates: start: 20110531
  5. BARACLUDE [Concomitant]
     Active Substance: ENTECAVIR
     Indication: CHRONIC HEPATITIS B
     Dosage: UNKNOWN
     Route: 065
     Dates: start: 20110531
  6. CISPLAN [Concomitant]
     Active Substance: CISPLATIN
     Indication: PRODUCT USED FOR UNKNOWN INDICATION
     Dosage: UNKNOWN
     Route: 065
     Dates: start: 20110601, end: 20110601
  7. AMILO [Concomitant]
     Indication: HEPATIC CIRRHOSIS
     Dosage: UNKNOWN
     Route: 065
     Dates: start: 20110601
  8. H-ZYME [Concomitant]
     Indication: HEPATIC CIRRHOSIS
     Dosage: UNKNOWN
     Route: 065
     Dates: start: 20110531
  9. URSA [Concomitant]
     Indication: HEPATIC CIRRHOSIS
     Dosage: UNKNOWN
     Route: 065
     Dates: start: 20110531
  10. GRANISETRON [Suspect]
     Active Substance: GRANISETRON
     Indication: PROPHYLAXIS OF NAUSEA AND VOMITING
     Dosage: UNKNOWN
     Route: 062
     Dates: start: 20110531, end: 20110606
  11. APETROL [Concomitant]
     Indication: HEPATIC CIRRHOSIS
     Dosage: UNKNOWN
     Route: 048
     Dates: start: 20110531
  12. MUCOBA [Concomitant]
     Indication: HEPATIC CIRRHOSIS
     Dosage: UNKNOWN
     Route: 065
     Dates: start: 20110531
  13. LEGALON [Concomitant]
     Active Substance: MILK THISTLE
     Indication: HEPATIC CIRRHOSIS
     Dosage: UNKNOWN
     Route: 065
     Dates: start: 20110531
  14. CIPROBAY [Concomitant]
     Active Substance: CIPROFLOXACIN
     Indication: HEPATOCELLULAR CARCINOMA
     Dosage: UNKNOWN
     Route: 065
     Dates: start: 20110601
  15. FLAGYL [Concomitant]
     Active Substance: METRONIDAZOLE\METRONIDAZOLE HYDROCHLORIDE
     Indication: HEPATOCELLULAR CARCINOMA
     Dosage: UNKNOWN
     Route: 065
     Dates: start: 20110602
  16. VITAMEDIN [Concomitant]
     Active Substance: CYANOCOBALAMIN\PYRIDOXINE HYDROCHLORIDE\THIAMINE
     Indication: HEPATIC CIRRHOSIS
     Dosage: UNKNOWN
     Route: 065
     Dates: start: 20110531

REACTIONS (1)
  - Headache [Recovered/Resolved]

NARRATIVE: CASE EVENT DATE: 20110603
